FAERS Safety Report 5742185-0 (Version None)
Quarter: 2008Q2

REPORT INFORMATION
  Report Type: 
  Country: None (occurrence: None)
  Receive Date: 20080515
  Receipt Date: 20080501
  Transmission Date: 20081010
  Serious: Yes (Other)
  Sender: FDA-Public Use
  Company Number: OXER20080006

PATIENT
  Age: 42 Year
  Sex: Female

DRUGS (6)
  1. OXYCODONE HCL EXTENDED-RELEASE [Suspect]
     Indication: IRRITABLE BOWEL SYNDROME
     Dosage: 10 MG, 1 TAB TID, PER ORAL
     Route: 048
  2. OXYCODONE HCL [Suspect]
     Indication: IRRITABLE BOWEL SYNDROME
     Dosage: 5 MG, 1 TAB BID
  3. CLONAZEPAM [Concomitant]
  4. PAROXETINE HCL [Concomitant]
  5. CLONIDINE [Concomitant]
  6. CLONIDINE [Concomitant]

REACTIONS (7)
  - ABDOMINAL DISTENSION [None]
  - ABDOMINAL PAIN LOWER [None]
  - ANXIETY [None]
  - DEPRESSION [None]
  - NAUSEA [None]
  - PAIN [None]
  - VOMITING [None]
